FAERS Safety Report 11106986 (Version 1)
Quarter: 2015Q2

REPORT INFORMATION
  Report Type: Spontaneous
  Country: US (occurrence: None)
  Receive Date: 20150511
  Receipt Date: 20150511
  Transmission Date: 20150821
  Serious: Yes (Disabling)
  Sender: FDA-Public Use
  Company Number: None

PATIENT
  Age: 48 Year
  Sex: Male
  Weight: 79.38 kg

DRUGS (9)
  1. LINZESS [Suspect]
     Active Substance: LINACLOTIDE
     Indication: IRRITABLE BOWEL SYNDROME
     Dosage: 1 PILL
     Route: 048
  2. HYDROCODONE [Concomitant]
     Active Substance: HYDROCODONE
  3. SIMVASTATIN. [Concomitant]
     Active Substance: SIMVASTATIN
  4. MIDODRINE [Concomitant]
     Active Substance: MIDODRINE
  5. LEVOTHYROXIN [Concomitant]
     Active Substance: LEVOTHYROXINE
  6. AMITRIPTYLINE [Concomitant]
     Active Substance: AMITRIPTYLINE
  7. WELLBUTRIN [Concomitant]
     Active Substance: BUPROPION HYDROCHLORIDE
  8. COREY [Concomitant]
  9. FENTANYL. [Concomitant]
     Active Substance: FENTANYL

REACTIONS (4)
  - Abdominal distension [None]
  - Diarrhoea [None]
  - Flatulence [None]
  - Abdominal pain [None]

NARRATIVE: CASE EVENT DATE: 20150501
